FAERS Safety Report 9677828 (Version 1)
Quarter: 2013Q4

REPORT INFORMATION
  Report Type: Spontaneous
  Country: FI (occurrence: FI)
  Receive Date: 20131108
  Receipt Date: 20131108
  Transmission Date: 20140711
  Serious: Yes (Disabling)
  Sender: FDA-Public Use
  Company Number: FI-RANBAXY-2013RR-75031

PATIENT
  Sex: Female

DRUGS (4)
  1. ATORVASTATIN ORION 20MG TABLETTI, KALVOPAALLYSTEINEN [Suspect]
     Indication: PRODUCT USED FOR UNKNOWN INDICATION
     Dosage: 10 MG
     Route: 048
     Dates: start: 20121109, end: 20130721
  2. ATORVASTATIN ORION 20MG TABLETTI, KALVOPAALLYSTEINEN [Suspect]
     Indication: PRODUCT USED FOR UNKNOWN INDICATION
     Dosage: 5 MG
     Route: 048
     Dates: start: 20130722, end: 20131005
  3. HIPREX [Concomitant]
     Indication: PRODUCT USED FOR UNKNOWN INDICATION
     Dosage: 1 G QD
     Route: 065
     Dates: start: 20110518, end: 20130722
  4. INDIVINA [Concomitant]
     Indication: PRODUCT USED FOR UNKNOWN INDICATION
     Dosage: 1MG/2.5, ONGIONG FOR SEVERAL YEARS
     Route: 048

REACTIONS (1)
  - Hypoaesthesia [Not Recovered/Not Resolved]
